FAERS Safety Report 7170801-8 (Version None)
Quarter: 2010Q4

REPORT INFORMATION
  Report Type: 
  Country: None (occurrence: None)
  Receive Date: 20101214
  Receipt Date: 20101214
  Transmission Date: 20110411
  Serious: No
  Sender: FDA-Public Use
  Company Number: None

PATIENT
  Age: 68 Year
  Sex: Male
  Weight: 84 kg

DRUGS (2)
  1. PRASUGREL [Suspect]
     Indication: STENT PLACEMENT
     Dosage: 10 MG EVERY DAY PO
     Route: 048
     Dates: start: 20100208, end: 20100223
  2. ASPIRIN [Suspect]
     Indication: STENT PLACEMENT

REACTIONS (4)
  - ANAEMIA [None]
  - HAEMATURIA [None]
  - HAEMORRHAGE [None]
  - URINARY RETENTION [None]
